FAERS Safety Report 13072365 (Version 2)
Quarter: 2017Q1

REPORT INFORMATION
  Report Type: Spontaneous
  Country: JP (occurrence: JP)
  Receive Date: 20161229
  Receipt Date: 20170120
  Transmission Date: 20170428
  Serious: Yes (Hospitalization)
  Sender: FDA-Public Use
  Company Number: PHJP2016JP038192

PATIENT
  Age: 66 Year
  Sex: Male

DRUGS (2)
  1. ZOMETA [Suspect]
     Active Substance: ZOLEDRONIC ACID
     Indication: METASTASES TO BONE
     Dosage: 4 MG, UNK
     Route: 041
     Dates: start: 20161116, end: 20161227
  2. ZANOSAR [Concomitant]
     Active Substance: STREPTOZOCIN
     Indication: NEUROENDOCRINE TUMOUR
     Dosage: 2250 MG, UNK
     Route: 042
     Dates: start: 20160316

REACTIONS (2)
  - Melaena [Recovered/Resolved]
  - Duodenal ulcer [Recovered/Resolved]

NARRATIVE: CASE EVENT DATE: 20161116
